FAERS Safety Report 15626440 (Version 1)
Quarter: 2018Q4

REPORT INFORMATION
  Report Type: Spontaneous
  Country: RU (occurrence: RU)
  Receive Date: 20181116
  Receipt Date: 20181116
  Transmission Date: 20190205
  Serious: Yes (Other)
  Sender: FDA-Public Use
  Company Number: RU-BAYER-2018-212554

PATIENT

DRUGS (1)
  1. ULTRAVIST [Suspect]
     Active Substance: IOPROMIDE
     Indication: ANGIOGRAM
     Dosage: UNK, ONCE

REACTIONS (3)
  - Hyperhidrosis [None]
  - Hypotension [None]
  - Scleral hyperaemia [None]

NARRATIVE: CASE EVENT DATE: 20181112
